FAERS Safety Report 11287271 (Version 1)
Quarter: 2015Q3

REPORT INFORMATION
  Report Type: Spontaneous
  Country: AU (occurrence: AU)
  Receive Date: 20150721
  Receipt Date: 20150721
  Transmission Date: 20151125
  Serious: Yes (Other)
  Sender: FDA-Public Use
  Company Number: AU-PFIZER INC-2015233344

PATIENT
  Sex: Female

DRUGS (1)
  1. PYRALIN EN [Suspect]
     Active Substance: SULFASALAZINE
     Indication: ARTHRITIS

REACTIONS (1)
  - Joint effusion [Unknown]
